FAERS Safety Report 15428348 (Version 1)
Quarter: 2018Q3

REPORT INFORMATION
  Report Type: Spontaneous
  Country: US (occurrence: US)
  Receive Date: 20180926
  Receipt Date: 20180926
  Transmission Date: 20181010
  Serious: Yes (Other)
  Sender: FDA-Public Use
  Company Number: US-STRIDES ARCOLAB LIMITED-2018SP006631

PATIENT

DRUGS (5)
  1. FLUOCINONIDE. [Suspect]
     Active Substance: FLUOCINONIDE
     Indication: ECZEMA
     Dosage: 0.05 %, BID
  2. ECONAZOLE [Suspect]
     Active Substance: ECONAZOLE
     Indication: ECZEMA
     Dosage: UNKNOWN
     Route: 061
  3. KETOCONAZOLE. [Suspect]
     Active Substance: KETOCONAZOLE
     Indication: ECZEMA
     Dosage: UNK
     Route: 061
  4. CLOBETASOL [Suspect]
     Active Substance: CLOBETASOL
     Indication: ECZEMA
     Dosage: 0.05 %, PRN
     Route: 061
  5. TRIAMCINOLONE [Suspect]
     Active Substance: TRIAMCINOLONE
     Indication: ECZEMA
     Dosage: 0.1 %, BID
     Route: 061

REACTIONS (1)
  - Adrenal insufficiency [Unknown]
